FAERS Safety Report 7016933-6 (Version None)
Quarter: 2010Q3

REPORT INFORMATION
  Report Type: 
  Country: None (occurrence: None)
  Receive Date: 20100927
  Receipt Date: 20100915
  Transmission Date: 20110219
  Serious: Yes (Other)
  Sender: FDA-Public Use
  Company Number: US-PFIZER INC-2010117626

PATIENT
  Sex: Female
  Weight: 90.703 kg

DRUGS (18)
  1. REVATIO [Suspect]
     Indication: PULMONARY ARTERIAL HYPERTENSION
     Dosage: 20 MG, 3X/DAY
     Route: 048
     Dates: start: 20100809, end: 20100820
  2. VALSARTAN [Concomitant]
     Dosage: 320 MG, DAILY
  3. AMLODIPINE [Concomitant]
     Dosage: 5 MG, DAILY
  4. FUROSEMIDE [Concomitant]
     Dosage: 40 MG, 2X/DAY
  5. LIPITOR [Concomitant]
     Dosage: 80 MG, DAILY
  6. ASPIRIN [Concomitant]
     Dosage: 81 MG, DAILY
  7. LEVOTHYROXINE [Concomitant]
     Indication: HYPERTHYROIDISM
     Dosage: 75 MG, DAILY
  8. PREDNISONE [Concomitant]
     Dosage: 10 MG, DAILY
  9. PRIMIDONE [Concomitant]
     Dosage: 50 MG, DAILY
  10. BACLOFEN [Concomitant]
     Dosage: 10 MG, 3X/DAY
  11. ETODOLAC [Concomitant]
     Dosage: 400 MG, 2X/DAY
  12. NEXIUM [Concomitant]
     Dosage: 40 MG, DAILY
  13. GENTEAL [Concomitant]
     Indication: FUCHS' SYNDROME
     Dosage: UNK, DAILY
     Route: 047
  14. FML [Concomitant]
     Dosage: UNK, DAILY
     Route: 047
  15. CYCLOSPORINE [Concomitant]
     Dosage: UNK, 2X/DAY
     Route: 047
  16. REFRESH [Concomitant]
     Dosage: UNK
  17. COSAMIN DS [Concomitant]
     Dosage: 500 MG, 3X/DAY
  18. CALCIUM [Concomitant]
     Dosage: 800 MG, 2X/DAY

REACTIONS (1)
  - VISION BLURRED [None]
